FAERS Safety Report 9675158 (Version 1)
Quarter: 2013Q4

REPORT INFORMATION
  Report Type: Spontaneous
  Country: US (occurrence: None)
  Receive Date: 20131105
  Receipt Date: 20131105
  Transmission Date: 20140711
  Serious: Yes (Life-Threatening)
  Sender: FDA-Public Use
  Company Number: 1713747-2013-99971

PATIENT
  Age: 68 Year
  Sex: Female
  Weight: 77.7 kg

DRUGS (5)
  1. SALINE [Suspect]
  2. FRESENIUS 2008K HEMODIALYSIS MACHINE [Concomitant]
  3. DIALYZER [Concomitant]
  4. BLOODLINES [Concomitant]
  5. ACID CONCENTRATE [Concomitant]

REACTIONS (2)
  - Bradycardia [None]
  - Cardio-respiratory arrest [None]
